FAERS Safety Report 21109328 (Version 1)
Quarter: 2022Q3

REPORT INFORMATION
  Report Type: Report from Study
  Country: CA (occurrence: CA)
  Receive Date: 20220721
  Receipt Date: 20220721
  Transmission Date: 20221027
  Serious: Yes (Other)
  Sender: FDA-Public Use
  Company Number: CA-JNJFOC-20211123739

PATIENT
  Age: 34 Year
  Sex: Female
  Weight: 52.3 kg

DRUGS (2)
  1. REMICADE [Suspect]
     Active Substance: INFLIXIMAB
     Indication: Crohn^s disease
     Dosage: THERAPY START DATE ALSO REPORTED AS 09/NOV/2020. EXPIRY DATE: 15-OCT-2024
     Route: 042
     Dates: start: 20180319
  2. REMICADE [Suspect]
     Active Substance: INFLIXIMAB
     Route: 042

REACTIONS (14)
  - Herpes zoster [Unknown]
  - Haematochezia [Not Recovered/Not Resolved]
  - Abdominal pain [Not Recovered/Not Resolved]
  - Frequent bowel movements [Not Recovered/Not Resolved]
  - Defaecation urgency [Not Recovered/Not Resolved]
  - Exposure during pregnancy [Recovered/Resolved]
  - Haemoglobin decreased [Unknown]
  - Mucous stools [Unknown]
  - Flatulence [Unknown]
  - Nausea [Unknown]
  - Therapeutic product effect decreased [Unknown]
  - Malaise [Unknown]
  - Off label use [Unknown]
  - Product use issue [Unknown]

NARRATIVE: CASE EVENT DATE: 20210801
